FAERS Safety Report 6679600-4 (Version None)
Quarter: 2010Q2

REPORT INFORMATION
  Report Type: 
  Country: None (occurrence: None)
  Receive Date: 20100408
  Receipt Date: 20090820
  Transmission Date: 20101027
  Serious: No
  Sender: FDA-Public Use
  Company Number: 2009-00450

PATIENT
  Age: 46 Year
  Sex: Female
  Weight: 54.4316 kg

DRUGS (4)
  1. ZICAM COLD REMEDY GEL SWABS [Suspect]
     Dosage: SPORADIC USE - OFF + ON : 2 YEARS AGO - JAN-2009
     Dates: end: 20090101
  2. METFORMIN [Concomitant]
  3. PRANDIN [Concomitant]
  4. LISINOPRIL [Concomitant]

REACTIONS (1)
  - ANOSMIA [None]
